FAERS Safety Report 5599413-4 (Version None)
Quarter: 2007Q4

REPORT INFORMATION
  Report Type: 
  Country: None (occurrence: None)
  Receive Date: 20071226
  Receipt Date: 20071130
  Transmission Date: 20080405
  Serious: No
  Sender: FDA-Public Use
  Company Number: 2007PV033791

PATIENT
  Age: 43 Year
  Sex: Female

DRUGS (4)
  1. SYMLIN [Suspect]
     Indication: TYPE 1 DIABETES MELLITUS
     Dosage: 120, 60 MCG, TID, SC
     Route: 058
     Dates: start: 20071126, end: 20071129
  2. SYMLIN [Suspect]
     Indication: TYPE 1 DIABETES MELLITUS
     Dosage: 120, 60 MCG, TID, SC
     Route: 058
     Dates: start: 20071130
  3. LANTUS [Concomitant]
  4. HUMALOG [Concomitant]

REACTIONS (1)
  - NAUSEA [None]
